FAERS Safety Report 10186376 (Version 1)
Quarter: 2014Q2

REPORT INFORMATION
  Report Type: Spontaneous
  Country: US (occurrence: US)
  Receive Date: 20140521
  Receipt Date: 20140521
  Transmission Date: 20141212
  Serious: No
  Sender: FDA-Public Use
  Company Number: US-ASTRAZENECA-2014SE05495

PATIENT
  Age: 69 Year
  Sex: Male
  Weight: 59 kg

DRUGS (10)
  1. PULMICORT RESPULES [Suspect]
     Indication: CHRONIC OBSTRUCTIVE PULMONARY DISEASE
     Dosage: 2 DOSES BID
     Route: 055
     Dates: start: 2009
  2. SYMBICORT  PMDI [Suspect]
     Indication: CHRONIC OBSTRUCTIVE PULMONARY DISEASE
     Dosage: 2 PUFFS BID
     Route: 055
     Dates: start: 2010
  3. XOPENEX [Concomitant]
     Indication: ATRIAL FIBRILLATION
  4. PREDNISONE [Concomitant]
     Indication: LUNG DISORDER
  5. DILTIAZEM [Concomitant]
     Indication: CARDIAC DISORDER
  6. DIGOXIN [Concomitant]
     Indication: CARDIAC DISORDER
  7. LEVOTHYROXINE [Concomitant]
     Indication: THYROID DISORDER
  8. XARELTO [Concomitant]
     Indication: ANTICOAGULANT THERAPY
     Dosage: DAILY
  9. SPIRONOLACTONE [Concomitant]
     Indication: DIURETIC THERAPY
  10. PANTOPRAZOLE [Concomitant]
     Indication: ULCER

REACTIONS (5)
  - Dyspnoea [Unknown]
  - Atrial fibrillation [Unknown]
  - Intentional product misuse [Unknown]
  - Off label use [Unknown]
  - Off label use [Unknown]
